FAERS Safety Report 21181152 (Version 1)
Quarter: 2022Q3

REPORT INFORMATION
  Report Type: Spontaneous
  Country: US (occurrence: US)
  Receive Date: 20220806
  Receipt Date: 20220806
  Transmission Date: 20221027
  Serious: No
  Sender: FDA-Public Use
  Company Number: US-SA-SAC20220728000693

PATIENT
  Age: 35 Year
  Sex: Female

DRUGS (2)
  1. FABRAZYME [Suspect]
     Active Substance: AGALSIDASE BETA
     Indication: Fabry^s disease
     Dosage: 70 MG (STRENGTH: 35MG) QOW
     Route: 042
     Dates: start: 202205
  2. FABRAZYME [Suspect]
     Active Substance: AGALSIDASE BETA
     Dosage: 20 MG (STRENGTH: 5MG) QOW
     Route: 042
     Dates: start: 202205

REACTIONS (1)
  - Inappropriate schedule of product administration [Unknown]

NARRATIVE: CASE EVENT DATE: 20220101
